FAERS Safety Report 25847839 (Version 1)
Quarter: 2025Q3

REPORT INFORMATION
  Report Type: Other
  Country: US (occurrence: US)
  Receive Date: 20250925
  Receipt Date: 20250925
  Transmission Date: 20251021
  Serious: No
  Sender: SIGMA TAU
  Company Number: US-LEADIANT BIOSCIENCES, INC.-2025LBI000023

PATIENT
  Sex: Male

DRUGS (5)
  1. MATULANE [Suspect]
     Active Substance: PROCARBAZINE HYDROCHLORIDE
     Indication: Diffuse large B-cell lymphoma
     Route: 048
     Dates: start: 20240905
  2. LYRICA [Concomitant]
     Active Substance: PREGABALIN
  3. OXYCODONE [Concomitant]
     Active Substance: OXYCODONE
  4. CYMBALTA [Concomitant]
     Active Substance: DULOXETINE HYDROCHLORIDE
  5. TRAZODONE [Concomitant]
     Active Substance: TRAZODONE HYDROCHLORIDE

REACTIONS (5)
  - Headache [Unknown]
  - Back pain [Unknown]
  - Insomnia [Unknown]
  - Neutropenia [Unknown]
  - Nausea [Unknown]
